FAERS Safety Report 9422338 (Version 2)
Quarter: 2013Q3

REPORT INFORMATION
  Report Type: Report from Study
  Country: US (occurrence: US)
  Receive Date: 20130726
  Receipt Date: 20130828
  Transmission Date: 20140515
  Serious: Yes (Hospitalization)
  Sender: FDA-Public Use
  Company Number: US-JNJFOC-20130711859

PATIENT
  Age: 17 Year
  Sex: Female

DRUGS (4)
  1. REMICADE [Suspect]
     Indication: CROHN^S DISEASE
     Route: 042
     Dates: start: 20130627
  2. AZATHIOPRINE [Concomitant]
     Indication: CROHN^S DISEASE
     Route: 065
     Dates: start: 201301
  3. OMEPRAZOLE [Concomitant]
     Indication: CROHN^S DISEASE
     Route: 065
     Dates: start: 201301
  4. PREDNISONE [Concomitant]
     Indication: CROHN^S DISEASE
     Route: 065
     Dates: start: 201301

REACTIONS (1)
  - Enteritis [Recovered/Resolved]
